FAERS Safety Report 10310847 (Version 2)
Quarter: 2014Q3

REPORT INFORMATION
  Report Type: Spontaneous
  Country: US (occurrence: US)
  Receive Date: 20140717
  Receipt Date: 20140717
  Transmission Date: 20150326
  Serious: Yes (Hospitalization, Other)
  Sender: FDA-Public Use
  Company Number: US-009507513-2010SP014793

PATIENT
  Sex: Female
  Weight: 99.79 kg

DRUGS (2)
  1. NUVARING [Suspect]
     Active Substance: ETHINYL ESTRADIOL\ETONOGESTREL
     Indication: CONTRACEPTION
     Dates: start: 20070302, end: 20080302
  2. TAMIFLU [Concomitant]
     Active Substance: OSELTAMIVIR PHOSPHATE
     Indication: ANTIVIRAL PROPHYLAXIS
     Dates: start: 200802

REACTIONS (11)
  - Metabolic acidosis [Recovering/Resolving]
  - Carotid arteriosclerosis [Unknown]
  - Thrombotic stroke [Recovering/Resolving]
  - Pneumonia [Unknown]
  - Bronchitis [Unknown]
  - Tinnitus [Recovering/Resolving]
  - Respiratory tract inflammation [Unknown]
  - Thrombosis [Unknown]
  - Deafness unilateral [Unknown]
  - Asthma [Unknown]
  - Hypertension [Unknown]

NARRATIVE: CASE EVENT DATE: 200801
